FAERS Safety Report 20176087 (Version 1)
Quarter: 2021Q4

REPORT INFORMATION
  Report Type: Spontaneous
  Country: US (occurrence: US)
  Receive Date: 20211213
  Receipt Date: 20211213
  Transmission Date: 20220304
  Serious: Yes (Hospitalization)
  Sender: FDA-Public Use
  Company Number: US-Fresenius Medical Care Renal Therapies Group-FMC-2112-001842

PATIENT
  Age: 80 Year
  Sex: Male
  Weight: 107 kg

DRUGS (3)
  1. DELFLEX WITH DEXTROSE 1.5% LOW MAGNESIUM LOW CALCIUM [Suspect]
     Active Substance: CALCIUM CHLORIDE\DEXTROSE\MAGNESIUM CHLORIDE\SODIUM CHLORIDE\SODIUM LACTATE
     Indication: End stage renal disease
     Dosage: EXCHANGES 5, FILL VOLUME 2600 ML, DWELL TIME 1.75 HOURS, LAST FILL 2000 ML, DAYTIME DWELL NONE, SINC
     Route: 033
  2. DELFLEX WITH DEXTROSE 2.5% LOW MAGNESIUM LOW CALCIUM [Suspect]
     Active Substance: CALCIUM CHLORIDE\DEXTROSE\MAGNESIUM CHLORIDE\SODIUM CHLORIDE\SODIUM LACTATE
     Indication: End stage renal disease
     Dosage: EXCHANGES 5, FILL VOLUME 2600 ML, DWELL TIME 1.75 HOURS, LAST FILL 2000 ML, DAYTIME DWELL NONE, SINC
     Route: 033
  3. DELFLEX WITH DEXTROSE 4.25% LOW MAGNESIUM LOW CALCIUM [Suspect]
     Active Substance: CALCIUM CHLORIDE\DEXTROSE\MAGNESIUM CHLORIDE\SODIUM CHLORIDE\SODIUM LACTATE
     Indication: End stage renal disease
     Dosage: EXCHANGES 5, FILL VOLUME 2600 ML, DWELL TIME 1.75 HOURS, LAST FILL 2000 ML, DAYTIME DWELL NONE, SINC
     Route: 033

REACTIONS (2)
  - Hyperkalaemia [Recovered/Resolved]
  - Treatment noncompliance [Unknown]
